FAERS Safety Report 14475505 (Version 1)
Quarter: 2018Q1

REPORT INFORMATION
  Report Type: Spontaneous
  Country: US (occurrence: US)
  Receive Date: 20180201
  Receipt Date: 20180201
  Transmission Date: 20180509
  Serious: Yes (Other)
  Sender: FDA-Public Use
  Company Number: US-PROCTER_AND_GAMBLE-GS18010294

PATIENT
  Age: 56 Year
  Sex: Female

DRUGS (3)
  1. CREST BE INSPIRED [Suspect]
     Active Substance: SODIUM FLUORIDE
     Dosage: UNK
     Route: 002
     Dates: end: 2005
  2. CREST PRO-HEALTH (STANNOUS FLUORIDE) [Suspect]
     Active Substance: STANNOUS FLUORIDE
     Dosage: UNK
     Route: 002
     Dates: end: 2005
  3. CRESTDENTIFRICEWHTNGWHTNGEXPRNLEMONICE [Suspect]
     Active Substance: SODIUM FLUORIDE
     Dosage: UNK
     Route: 002
     Dates: end: 2005

REACTIONS (6)
  - Dental caries [None]
  - Procedural pain [None]
  - Tooth loss [Not Recovered/Not Resolved]
  - Jaw disorder [Not Recovered/Not Resolved]
  - Gingival abscess [Not Recovered/Not Resolved]
  - Gingival pain [Not Recovered/Not Resolved]

NARRATIVE: CASE EVENT DATE: 2003
